FAERS Safety Report 10283809 (Version 1)
Quarter: 2014Q3

REPORT INFORMATION
  Report Type: Spontaneous
  Country: JP (occurrence: JP)
  Receive Date: 20140708
  Receipt Date: 20140708
  Transmission Date: 20150326
  Serious: Yes (Other)
  Sender: FDA-Public Use
  Company Number: JP-ASTRAZENECA-2014SE47755

PATIENT

DRUGS (1)
  1. CARBOCAIN INJECTION [Suspect]
     Active Substance: MEPIVACAINE HYDROCHLORIDE
     Dosage: DOSE UNKNOWN
     Route: 014

REACTIONS (2)
  - Quadriplegia [Unknown]
  - Asthenia [Unknown]
